FAERS Safety Report 16035380 (Version 1)
Quarter: 2019Q1

REPORT INFORMATION
  Report Type: Spontaneous
  Country: US (occurrence: US)
  Receive Date: 20190305
  Receipt Date: 20190305
  Transmission Date: 20190418
  Serious: No
  Sender: FDA-Public Use
  Company Number: US-SA-2019SA060239

PATIENT

DRUGS (6)
  1. METHOTREXATE. [Suspect]
     Active Substance: METHOTREXATE
     Dosage: UNK UNK, UNK
     Route: 065
     Dates: start: 20180509
  2. RITUXAN [Suspect]
     Active Substance: RITUXIMAB
     Dosage: UNK UNK, UNK
     Route: 065
  3. ORENCIA [Suspect]
     Active Substance: ABATACEPT
     Dosage: UNK UNK, UNK
     Route: 065
     Dates: start: 201706, end: 201706
  4. SIMPONI [Suspect]
     Active Substance: GOLIMUMAB
     Dosage: UNK UNK, UNK
     Route: 065
  5. ACTEMRA [Suspect]
     Active Substance: TOCILIZUMAB
     Dosage: UNK UNK, UNK
     Route: 065
  6. ARAVA [Suspect]
     Active Substance: LEFLUNOMIDE
     Dosage: UNK, UNK
     Route: 065
     Dates: start: 201108, end: 201606

REACTIONS (1)
  - Drug ineffective [Unknown]
